FAERS Safety Report 9639926 (Version 2)
Quarter: 2013Q4

REPORT INFORMATION
  Report Type: Spontaneous
  Country: US (occurrence: US)
  Receive Date: 20131023
  Receipt Date: 20131023
  Transmission Date: 20140711
  Serious: No
  Sender: FDA-Public Use
  Company Number: US-MYLANLABS-2013S1001912

PATIENT
  Age: 64 Year
  Sex: Female
  Weight: 115.67 kg

DRUGS (6)
  1. CARVEDILOL TABLETS [Suspect]
     Indication: BLOOD PRESSURE INCREASED
     Route: 048
     Dates: start: 200912
  2. METFORMIN [Concomitant]
     Indication: DIABETES MELLITUS
  3. COUMADIN [Concomitant]
     Indication: ATRIAL FIBRILLATION
     Dosage: ONCE OR TWICE A DAY
  4. DILTIAZEM ER [Concomitant]
     Indication: BLOOD PRESSURE INCREASED
  5. FUROSEMIDE [Concomitant]
     Indication: FLUID RETENTION
  6. POTASSIUM [Concomitant]
     Indication: ELECTROLYTE SUBSTITUTION THERAPY

REACTIONS (4)
  - Urinary tract infection [Not Recovered/Not Resolved]
  - Cystitis [Not Recovered/Not Resolved]
  - Joint swelling [Not Recovered/Not Resolved]
  - Fluid retention [Not Recovered/Not Resolved]
